FAERS Safety Report 24617491 (Version 1)
Quarter: 2024Q4

REPORT INFORMATION
  Report Type: Spontaneous
  Country: US (occurrence: US)
  Receive Date: 20241114
  Receipt Date: 20241114
  Transmission Date: 20250115
  Serious: No
  Sender: NOVARTIS
  Company Number: US-002147023-NVSC2024US219246

PATIENT
  Sex: Female

DRUGS (1)
  1. LEQVIO [Suspect]
     Active Substance: INCLISIRAN SODIUM
     Indication: Low density lipoprotein decreased
     Dosage: 284 MG (EVERY 6 MONTHS)
     Route: 058
     Dates: start: 20241111, end: 20241112

REACTIONS (1)
  - Injection site erythema [Unknown]

NARRATIVE: CASE EVENT DATE: 20241111
